FAERS Safety Report 9691182 (Version 1)
Quarter: 2013Q4

REPORT INFORMATION
  Report Type: Spontaneous
  Country: AU (occurrence: AU)
  Receive Date: 20131115
  Receipt Date: 20131115
  Transmission Date: 20140711
  Serious: Yes (Other)
  Sender: FDA-Public Use
  Company Number: AU-ASTRAZENECA-2013SE82360

PATIENT
  Sex: Female

DRUGS (5)
  1. ARIMIDEX [Suspect]
     Indication: BREAST CANCER FEMALE
     Route: 048
  2. NEXIUM [Concomitant]
  3. OSTEOVIT D (VITAMIN D) [Concomitant]
  4. VITAMIN C [Concomitant]
  5. VOLTAREN (DICLOFENAC) [Concomitant]

REACTIONS (3)
  - Atrial fibrillation [Not Recovered/Not Resolved]
  - Nail avulsion [Not Recovered/Not Resolved]
  - Off label use [Not Recovered/Not Resolved]
